FAERS Safety Report 15764795 (Version 1)
Quarter: 2018Q4

REPORT INFORMATION
  Report Type: Spontaneous
  Country: TH (occurrence: TH)
  Receive Date: 20181227
  Receipt Date: 20181227
  Transmission Date: 20190205
  Serious: Yes (Other)
  Sender: FDA-Public Use
  Company Number: PHHY2018TH194065

PATIENT
  Age: 56 Year
  Sex: Male

DRUGS (8)
  1. ENALAPRIL [Suspect]
     Active Substance: ENALAPRIL
     Indication: CORONARY ARTERY DISEASE
     Dosage: 10 MG, BID
     Route: 065
  2. BISOPROLOL [Suspect]
     Active Substance: BISOPROLOL
     Indication: CORONARY ARTERY DISEASE
     Dosage: 5 MG, QD
     Route: 065
  3. OMEPRAZOLE. [Concomitant]
     Active Substance: OMEPRAZOLE
     Indication: PRODUCT USED FOR UNKNOWN INDICATION
     Dosage: 20 MG, QD
     Route: 065
  4. ACETYLSALICYLIC ACID [Suspect]
     Active Substance: ASPIRIN
     Indication: CORONARY ARTERY DISEASE
     Dosage: 81 MG, QD
     Route: 065
  5. AMLODIPINE [Suspect]
     Active Substance: AMLODIPINE BESYLATE
     Indication: CORONARY ARTERY DISEASE
     Dosage: 5 MG, QD
     Route: 065
  6. METFORMIN [Concomitant]
     Active Substance: METFORMIN HYDROCHLORIDE
     Indication: TYPE 2 DIABETES MELLITUS
     Dosage: 1 G, BID
     Route: 065
  7. ATORVASTATIN [Suspect]
     Active Substance: ATORVASTATIN
     Indication: CORONARY ARTERY DISEASE
     Dosage: 40 MG, QD
     Route: 065
  8. EZETIMIBE. [Suspect]
     Active Substance: EZETIMIBE
     Indication: CORONARY ARTERY DISEASE
     Dosage: 10 MG, QD
     Route: 065

REACTIONS (1)
  - Angina pectoris [Recovered/Resolved]
